FAERS Safety Report 6400183-8 (Version None)
Quarter: 2009Q4

REPORT INFORMATION
  Report Type: 
  Country: None (occurrence: None)
  Receive Date: 20091014
  Receipt Date: 20091007
  Transmission Date: 20100525
  Serious: Yes (Hospitalization, Other)
  Sender: FDA-Public Use
  Company Number: BR-BAYER-200922737LA

PATIENT
  Age: 24 Year
  Sex: Female

DRUGS (4)
  1. BETAFERON [Suspect]
     Indication: RELAPSING-REMITTING MULTIPLE SCLEROSIS
     Dosage: BETAJECT
     Route: 058
     Dates: start: 20090401
  2. OSCAL D [Concomitant]
     Indication: OSTEOPENIA
     Dosage: PER DAY
     Route: 048
     Dates: start: 20090701
  3. ROCALTROL [Concomitant]
     Indication: OSTEOPENIA
     Route: 048
     Dates: start: 20090701
  4. METICORTEN [Concomitant]
     Indication: MULTIPLE SCLEROSIS
     Dosage: PER DAY
     Route: 048
     Dates: start: 20090701

REACTIONS (2)
  - HEMIPLEGIA [None]
  - MULTIPLE SCLEROSIS RELAPSE [None]
